FAERS Safety Report 6318581-X (Version None)
Quarter: 2009Q3

REPORT INFORMATION
  Report Type: 
  Country: None (occurrence: None)
  Receive Date: 20090821
  Receipt Date: 20090819
  Transmission Date: 20100115
  Serious: Yes (Life-Threatening, Other)
  Sender: FDA-Public Use
  Company Number: PHHY2009JP30308

PATIENT
  Sex: Male
  Weight: 50 kg

DRUGS (8)
  1. LOPRESOR [Suspect]
     Indication: PULSE ABNORMAL
     Dosage: 40 MG, PRN
     Route: 048
     Dates: start: 20090623, end: 20090623
  2. HISHIMIDON [Concomitant]
     Dosage: 100 MG, UNK
     Route: 048
  3. ASPIRIN [Concomitant]
     Dosage: 100 MG, UNK
     Route: 048
  4. HALCION [Concomitant]
     Dosage: 0.125 MG, UNK
     Route: 048
  5. TAKEPRON [Concomitant]
     Dosage: 15 MG, UNK
     Route: 048
  6. FRANDOL S [Concomitant]
     Dosage: 40 MG, QD
  7. NITOROL [Concomitant]
     Dosage: 40 MG, UNK
     Route: 048
  8. ANPLAG [Concomitant]
     Dosage: 300 MG, UNK
     Route: 048

REACTIONS (4)
  - BRADYCARDIA [None]
  - HYPOTENSION [None]
  - LIVER DISORDER [None]
  - SINUS ARREST [None]
